FAERS Safety Report 18339651 (Version 1)
Quarter: 2020Q4

REPORT INFORMATION
  Report Type: Report from Study
  Country: KR (occurrence: KR)
  Receive Date: 20201002
  Receipt Date: 20201002
  Transmission Date: 20210113
  Serious: Yes (Other)
  Sender: FDA-Public Use
  Company Number: KR-MEDICURE INC.-2092373

PATIENT

DRUGS (1)
  1. ZYPITAMAG [Suspect]
     Active Substance: PITAVASTATIN
     Indication: HYPERLIPIDAEMIA

REACTIONS (1)
  - Angina pectoris [Unknown]
